FAERS Safety Report 5601791-4 (Version None)
Quarter: 2008Q1

REPORT INFORMATION
  Report Type: 
  Country: None (occurrence: None)
  Receive Date: 20080124
  Receipt Date: 20080114
  Transmission Date: 20080703
  Serious: Yes (Other)
  Sender: FDA-Public Use
  Company Number: US-MERCK-0712USA02283

PATIENT
  Age: 55 Year
  Sex: Male
  Weight: 69 kg

DRUGS (10)
  1. ISENTRESS [Suspect]
     Indication: HIV INFECTION
     Route: 048
     Dates: start: 20070530, end: 20071119
  2. LEXIVA [Concomitant]
     Indication: HIV INFECTION
     Route: 065
     Dates: start: 20070530, end: 20071119
  3. NORVIR [Concomitant]
     Indication: HIV INFECTION
     Route: 065
     Dates: start: 20070530, end: 20071119
  4. ZIDOVUDINE [Concomitant]
     Indication: HIV INFECTION
     Route: 065
     Dates: start: 20070530, end: 20071119
  5. DAPSONE [Concomitant]
     Indication: PROPHYLAXIS
     Route: 065
     Dates: start: 20070629
  6. LIPITOR [Concomitant]
     Indication: HYPERLIPIDAEMIA
     Route: 065
     Dates: start: 20070904, end: 20071119
  7. GEMFIBROZIL [Concomitant]
     Indication: HYPERLIPIDAEMIA
     Route: 065
     Dates: start: 20070629, end: 20071119
  8. LEXAPRO [Concomitant]
     Indication: DEPRESSION
     Route: 065
     Dates: start: 20061001
  9. LORAZEPAM [Concomitant]
     Indication: ANXIETY
     Route: 065
     Dates: start: 20061001
  10. MARINOL [Concomitant]
     Indication: NAUSEA
     Route: 065
     Dates: start: 20061001

REACTIONS (1)
  - DIFFUSE LARGE B-CELL LYMPHOMA [None]
